FAERS Safety Report 4854298-6 (Version None)
Quarter: 2005Q4

REPORT INFORMATION
  Report Type: 
  Country: None (occurrence: None)
  Receive Date: 20051213
  Receipt Date: 20051213
  Transmission Date: 20060501
  Serious: Yes (Other)
  Sender: FDA-Public Use
  Company Number: None

PATIENT
  Age: 52 Year
  Sex: Male
  Weight: 100.2449 kg

DRUGS (5)
  1. DEFINITY [Suspect]
     Indication: CATHETERISATION CARDIAC
     Dosage: 0.3ML  ONE DOSE  IV BOLUS
     Route: 040
     Dates: start: 20050816, end: 20050816
  2. NORVASC [Concomitant]
  3. LISINOPRIL [Concomitant]
  4. INDOMETHACIN [Concomitant]
  5. ALBUTEROL [Concomitant]

REACTIONS (2)
  - PRURITUS [None]
  - URTICARIA [None]
